FAERS Safety Report 14649097 (Version 1)
Quarter: 2018Q1

REPORT INFORMATION
  Report Type: Spontaneous
  Country: FI (occurrence: FI)
  Receive Date: 20180316
  Receipt Date: 20180316
  Transmission Date: 20180509
  Serious: Yes (Other)
  Sender: FDA-Public Use
  Company Number: FI-PFIZER INC-2018101469

PATIENT
  Age: 80 Year
  Sex: Male

DRUGS (20)
  1. AVASTIN /00848101/ [Suspect]
     Active Substance: SIMVASTATIN
     Indication: COLORECTAL CANCER METASTATIC
     Dosage: TOTALLY FIVE CYCLES
     Route: 065
     Dates: start: 20160805, end: 20161118
  2. DEXAMETASON /00016001/ [Concomitant]
     Active Substance: DEXAMETHASONE
     Indication: PREMEDICATION
     Dosage: 1.5 MG, AS NEEDED (WHEN NEEDED(NOT MORE THAN 9 MG PER DAY) PREMEDICATION 6 TABLETS (9 MG) AT TREATME
     Route: 048
  3. BISOPROLOL RATIOPHARM [Concomitant]
     Active Substance: BISOPROLOL
     Dosage: 2.5 MG, 1X/DAY
     Route: 048
  4. XELODA [Suspect]
     Active Substance: CAPECITABINE
     Dosage: UNK
     Route: 065
     Dates: start: 20170101
  5. SOMAC [Concomitant]
     Active Substance: PANTOPRAZOLE SODIUM
     Dosage: 20 MG, 1X/DAY
     Route: 048
  6. SANDOZ ROSUVASTATIN [Concomitant]
     Dosage: 10 MG, 1X/DAY
     Route: 048
  7. GRANISETRON STADA [Concomitant]
     Dosage: 1 MG, AS NEEDED (WHEN NEEDED)
     Route: 065
  8. KLEXANE [Concomitant]
     Active Substance: ENOXAPARIN
     Indication: PULMONARY EMBOLISM
     Dosage: 40 MG, 1X/DAY
     Route: 058
  9. LATANOPROST PFIZER [Concomitant]
     Active Substance: LATANOPROST
     Dosage: DOSE: 50MCG/ML
     Route: 047
  10. LOSARTAN ORION [Concomitant]
     Dosage: 100 MG, 1X/DAY
     Route: 048
  11. OXALIPLATIN. [Suspect]
     Active Substance: OXALIPLATIN
     Dosage: TOTALLY FIVE CYCLES
     Route: 065
     Dates: start: 20160805, end: 20161118
  12. XELODA [Suspect]
     Active Substance: CAPECITABINE
     Indication: COLORECTAL CANCER METASTATIC
     Dosage: ADJUVANT THERAPY, TOTALLY EIGHT CYCLES
     Route: 065
     Dates: start: 20140101
  13. XELODA [Suspect]
     Active Substance: CAPECITABINE
     Dosage: TOTALLY FIVE CYCLES
     Route: 065
     Dates: start: 20160805, end: 20161118
  14. PRIMPERAN [Concomitant]
     Active Substance: METOCLOPRAMIDE HYDROCHLORIDE
     Dosage: 10 MG, AS NEEDED (WHEN NEEDED(NOT MORE THAN 30 MG PER DAY))
     Route: 065
  15. AVASTIN /00848101/ [Suspect]
     Active Substance: SIMVASTATIN
     Dosage: UNK
     Route: 065
     Dates: start: 20170101
  16. NITROGLYCERIN. [Concomitant]
     Active Substance: NITROGLYCERIN
     Dosage: 0.5 MG, AS NEEDED (WHEN NEEDED)
     Route: 060
  17. ORMOX [Concomitant]
     Dosage: 20 MG, 1X/DAY
     Route: 048
  18. IMOCUR /00384302/ [Concomitant]
     Dosage: 2 MG, AS NEEDED (WHEN NEEDED 2 CAPSULES EIGHT TIMESNOT MORE THAN16 MG PER DAY)
     Route: 048
  19. PEGORION [Concomitant]
     Active Substance: POLYETHYLENE GLYCOL 4000
     Dosage: 12 G, AS NEEDED (WHEN NEEDED12 G MIXTURE1 TO 8 BAGS (NOT MORE THAN 8 BAGS/DAY))
     Route: 065
  20. NORVASC [Concomitant]
     Active Substance: AMLODIPINE BESYLATE
     Dosage: 5 MG, 1X/DAY
     Route: 048

REACTIONS (4)
  - Nausea [Unknown]
  - Neurotoxicity [Unknown]
  - Palmar-plantar erythrodysaesthesia syndrome [Unknown]
  - Diarrhoea [Unknown]

NARRATIVE: CASE EVENT DATE: 20160101
